FAERS Safety Report 13949545 (Version 3)
Quarter: 2018Q3

REPORT INFORMATION
  Report Type: Spontaneous
  Country: US (occurrence: US)
  Receive Date: 20170908
  Receipt Date: 20180704
  Transmission Date: 20181010
  Serious: Yes (Hospitalization, Other)
  Sender: FDA-Public Use
  Company Number: US-DSJP-DSU-2017-135772

PATIENT

DRUGS (1)
  1. BENICAR [Suspect]
     Active Substance: OLMESARTAN MEDOXOMIL
     Indication: HYPERTENSION
     Dosage: 20 MG, QD
     Route: 048
     Dates: start: 20080516, end: 20130522

REACTIONS (6)
  - Colitis microscopic [Recovering/Resolving]
  - Dizziness [Unknown]
  - Weight decreased [Unknown]
  - Oesophagitis ulcerative [Recovering/Resolving]
  - Hiatus hernia [Unknown]
  - Colonic abscess [Unknown]

NARRATIVE: CASE EVENT DATE: 20100908
